FAERS Safety Report 8538227-X (Version None)
Quarter: 2012Q3

REPORT INFORMATION
  Report Type: 
  Country: None (occurrence: None)
  Receive Date: 20120726
  Receipt Date: 20120716
  Transmission Date: 20120928
  Serious: Yes (Other)
  Sender: FDA-Public Use
  Company Number: US-BIOGENIDEC-2012BI025581

PATIENT
  Age: 55 Year
  Sex: Female

DRUGS (1)
  1. AVONEX [Suspect]
     Indication: MULTIPLE SCLEROSIS
     Route: 030
     Dates: start: 20010512

REACTIONS (6)
  - PYREXIA [None]
  - MUSCLE SPASMS [None]
  - PARAESTHESIA [None]
  - URINARY TRACT INFECTION [None]
  - ASTHENIA [None]
  - INFLUENZA LIKE ILLNESS [None]
